FAERS Safety Report 16523696 (Version 1)
Quarter: 2019Q3

REPORT INFORMATION
  Report Type: Spontaneous
  Country: JP (occurrence: JP)
  Receive Date: 20190702
  Receipt Date: 20190702
  Transmission Date: 20191004
  Serious: Yes (Death, Life-Threatening, Other)
  Sender: FDA-Public Use
  Company Number: JP-PFIZER INC-2018524647

PATIENT
  Sex: Female

DRUGS (2)
  1. LORBRENA [Suspect]
     Active Substance: LORLATINIB
     Dosage: 50 MG, 1X/DAY
     Route: 048
     Dates: start: 20190204, end: 20190307
  2. LORBRENA [Suspect]
     Active Substance: LORLATINIB
     Dosage: 100 MG, 1X/DAY
     Route: 048
     Dates: start: 20181204, end: 20190203

REACTIONS (6)
  - Neoplasm progression [Fatal]
  - Condition aggravated [Recovered/Resolved with Sequelae]
  - Hyperlipidaemia [Unknown]
  - Pneumonia [Recovering/Resolving]
  - Oedema [Recovering/Resolving]
  - Hypoalbuminaemia [Recovered/Resolved with Sequelae]

NARRATIVE: CASE EVENT DATE: 20181221
